FAERS Safety Report 11273838 (Version 2)
Quarter: 2015Q3

REPORT INFORMATION
  Report Type: Spontaneous
  Country: JP (occurrence: JP)
  Receive Date: 20150715
  Receipt Date: 20150722
  Transmission Date: 20151125
  Serious: Yes (Other)
  Sender: FDA-Public Use
  Company Number: JP-PFIZER INC-2015231161

PATIENT
  Age: 87 Year
  Sex: Male

DRUGS (3)
  1. ARICEPT [Suspect]
     Active Substance: DONEPEZIL HYDROCHLORIDE
     Route: 048
  2. HALCION [Suspect]
     Active Substance: TRIAZOLAM
     Route: 048
  3. DEPAS [Concomitant]
     Active Substance: ETIZOLAM
     Route: 048

REACTIONS (1)
  - Seizure [Unknown]
